FAERS Safety Report 6294119-0 (Version None)
Quarter: 2009Q3

REPORT INFORMATION
  Report Type: 
  Country: None (occurrence: None)
  Receive Date: 20090803
  Receipt Date: 20081201
  Transmission Date: 20100115
  Serious: No
  Sender: FDA-Public Use
  Company Number: A0758710A

PATIENT
  Sex: Male

DRUGS (1)
  1. NICORETTE [Suspect]

REACTIONS (2)
  - FEELING ABNORMAL [None]
  - INTENTIONAL DRUG MISUSE [None]
